FAERS Safety Report 26192712 (Version 1)
Quarter: 2025Q4

REPORT INFORMATION
  Report Type: Spontaneous
  Country: US (occurrence: US)
  Receive Date: 20251223
  Receipt Date: 20251223
  Transmission Date: 20260118
  Serious: No
  Sender: BRACCO
  Company Number: US-BRACCO-2025US08500

PATIENT
  Age: 61 Year
  Sex: Female
  Weight: 60 kg

DRUGS (3)
  1. LUMASON [Suspect]
     Active Substance: SULFUR HEXAFLUORIDE
     Indication: Echocardiogram
     Dosage: 0.5 ML, SINGLE
     Dates: start: 20251110, end: 20251110
  2. LUMASON [Suspect]
     Active Substance: SULFUR HEXAFLUORIDE
  3. LUMASON [Suspect]
     Active Substance: SULFUR HEXAFLUORIDE

REACTIONS (4)
  - Headache [Recovered/Resolved]
  - Lethargy [Recovered/Resolved]
  - Paraesthesia [Recovered/Resolved]
  - Blood pressure increased [Unknown]

NARRATIVE: CASE EVENT DATE: 20251110
